FAERS Safety Report 12252531 (Version 3)
Quarter: 2016Q2

REPORT INFORMATION
  Report Type: Spontaneous
  Country: EE (occurrence: EE)
  Receive Date: 20160411
  Receipt Date: 20160523
  Transmission Date: 20160815
  Serious: Yes (Hospitalization, Disabling, Other)
  Sender: FDA-Public Use
  Company Number: PHHY2016EE043590

PATIENT
  Age: 51 Year
  Sex: Male

DRUGS (18)
  1. ROFERON-A [Suspect]
     Active Substance: INTERFERON ALFA-2A
     Indication: CHRONIC MYELOID LEUKAEMIA
     Dosage: 3 MIU, QD
     Route: 058
     Dates: start: 20131223
  2. HYDREA [Suspect]
     Active Substance: HYDROXYUREA
     Indication: THROMBOCYTOSIS
     Dosage: 1 G, QD
     Route: 048
     Dates: start: 201012, end: 201111
  3. DOLOPROCT [Concomitant]
     Active Substance: FLUOCORTOLONE PIVALATE\LIDOCAINE HYDROCHLORIDE
     Indication: PROCTITIS
     Dosage: 1 MG+40 MG
     Route: 054
     Dates: start: 2005
  4. SPRYCEL [Suspect]
     Active Substance: DASATINIB
     Dosage: 100 MG, QD
     Route: 048
     Dates: start: 20160401
  5. OXAZEPAM. [Concomitant]
     Active Substance: OXAZEPAM
     Indication: SLEEP DISORDER
     Dosage: 10 MG, PRN
     Route: 048
  6. SPRYCEL [Suspect]
     Active Substance: DASATINIB
     Dosage: 50 MG, QD
     Route: 048
     Dates: start: 20110610
  7. HYDREA [Suspect]
     Active Substance: HYDROXYUREA
     Dosage: 1.5 G, QD
     Route: 048
     Dates: start: 201310
  8. HYDREA [Suspect]
     Active Substance: HYDROXYUREA
     Dosage: UNK
     Route: 048
     Dates: start: 201311
  9. HYDREA [Suspect]
     Active Substance: HYDROXYUREA
     Dosage: INTERMITTENT 1 G AND 0.5 , QD
     Route: 065
     Dates: start: 201403
  10. HYDREA [Suspect]
     Active Substance: HYDROXYUREA
     Dosage: 1.5 MG, UNK
     Route: 065
  11. PANTOPRAZOLE [Concomitant]
     Active Substance: PANTOPRAZOLE SODIUM
     Indication: GASTROINTESTINAL TRACT IRRITATION
     Dosage: 40 MG, UNK
     Route: 048
     Dates: start: 20160226
  12. HYDROXYUREA. [Suspect]
     Active Substance: HYDROXYUREA
     Dosage: UNK
     Route: 048
     Dates: start: 20110610
  13. HYDROXYUREA. [Suspect]
     Active Substance: HYDROXYUREA
     Dosage: 1 G, QD
     Route: 048
     Dates: start: 20120504
  14. SPRYCEL [Suspect]
     Active Substance: DASATINIB
     Indication: CHRONIC MYELOID LEUKAEMIA
     Dosage: 100 MG, QD
     Route: 048
     Dates: start: 20101022
  15. HYDROXYUREA. [Suspect]
     Active Substance: HYDROXYUREA
     Indication: THROMBOCYTOSIS
     Dosage: 1 G, QD
     Route: 048
     Dates: start: 20101221, end: 201101
  16. ROFERON-A [Suspect]
     Active Substance: INTERFERON ALFA-2A
     Dosage: 3 MIU, Q48H
     Route: 058
     Dates: start: 201502
  17. TASIGNA [Suspect]
     Active Substance: NILOTINIB
     Indication: CHRONIC MYELOID LEUKAEMIA
     Dosage: 400 MG, BID
     Route: 048
     Dates: start: 20120504, end: 20160401
  18. HYDREA [Suspect]
     Active Substance: HYDROXYUREA
     Dosage: 1 G, QD
     Route: 048
     Dates: start: 201301

REACTIONS (24)
  - Marrow hyperplasia [Unknown]
  - Malignant neoplasm progression [Unknown]
  - Intervertebral disc protrusion [Unknown]
  - Sinus tachycardia [Unknown]
  - Peripheral swelling [Unknown]
  - Chest pain [Unknown]
  - Necrosis [Not Recovered/Not Resolved]
  - Splenomegaly [Unknown]
  - Weight decreased [Unknown]
  - Erythema [Unknown]
  - Oedema [Unknown]
  - Infection [Unknown]
  - Intervertebral disc compression [Unknown]
  - Pleural effusion [Unknown]
  - Haematoma [Unknown]
  - Hypoaesthesia [Unknown]
  - Pain in extremity [Unknown]
  - Hepatic enzyme increased [Unknown]
  - Peripheral artery thrombosis [Not Recovered/Not Resolved]
  - Myeloproliferative neoplasm [Unknown]
  - Chronic myeloid leukaemia [Unknown]
  - Hyperhidrosis [Unknown]
  - Kyphosis [Unknown]
  - Cough [Unknown]

NARRATIVE: CASE EVENT DATE: 20101227
